FAERS Safety Report 7319204-3 (Version None)
Quarter: 2011Q1

REPORT INFORMATION
  Report Type: 
  Country: None (occurrence: None)
  Receive Date: 20110228
  Receipt Date: 20110215
  Transmission Date: 20110831
  Serious: Yes (Other)
  Sender: FDA-Public Use
  Company Number: PHHY2011BR13319

PATIENT
  Sex: Female

DRUGS (4)
  1. DIOVAN [Suspect]
     Dosage: UNK
  2. RASILEZ [Suspect]
     Dosage: 300 MG, UNK
  3. DIOVAN HCT [Suspect]
     Dosage: UNK
  4. DIOVAN [Suspect]
     Dosage: 320 MG

REACTIONS (4)
  - BLOOD PRESSURE FLUCTUATION [None]
  - CEREBROVASCULAR ACCIDENT [None]
  - HYPERTENSION [None]
  - SWELLING [None]
